FAERS Safety Report 9761332 (Version 1)
Quarter: 2013Q4

REPORT INFORMATION
  Report Type: Spontaneous
  Country: US (occurrence: US)
  Receive Date: 20131216
  Receipt Date: 20131216
  Transmission Date: 20140711
  Serious: Yes (Hospitalization, Other)
  Sender: FDA-Public Use
  Company Number: US-UCBSA-105575

PATIENT
  Age: 70 Year
  Sex: Female

DRUGS (4)
  1. CIMZIA [Suspect]
  2. VENTAVIS [Suspect]
     Indication: PULMONARY ARTERIAL HYPERTENSION
     Dosage: 20MCG/ML CONCENTRATION
     Route: 055
     Dates: end: 201310
  3. CIPRO [Suspect]
  4. ADCIRCA [Suspect]
     Dates: end: 201310

REACTIONS (8)
  - Vision blurred [Not Recovered/Not Resolved]
  - Renal failure [Recovering/Resolving]
  - Vomiting [Recovering/Resolving]
  - Diarrhoea [Recovering/Resolving]
  - Hypotension [Recovering/Resolving]
  - Pulmonary arterial hypertension [Unknown]
  - Blood creatinine increased [Recovering/Resolving]
  - Dry eye [Unknown]
